FAERS Safety Report 5155094-5 (Version None)
Quarter: 2006Q4

REPORT INFORMATION
  Report Type: 
  Country: None (occurrence: None)
  Receive Date: 20061121
  Receipt Date: 20061113
  Transmission Date: 20070319
  Serious: Yes (Other)
  Sender: FDA-Public Use
  Company Number: GB-GLAXOSMITHKLINE-B0447193A

PATIENT
  Age: 31 Year
  Sex: Female

DRUGS (4)
  1. PAROXETINE HCL [Suspect]
     Indication: PANIC DISORDER
     Dosage: 20MG PER DAY
     Route: 065
  2. ALPRAZOLAM [Suspect]
     Indication: PANIC DISORDER
     Route: 065
  3. SERTRALINE [Suspect]
     Indication: PANIC DISORDER
     Route: 065
  4. ALCOHOL [Suspect]

REACTIONS (8)
  - AGITATION [None]
  - ALCOHOL POISONING [None]
  - DEPRESSION [None]
  - HOMICIDE [None]
  - INTENTIONAL OVERDOSE [None]
  - RESTLESSNESS [None]
  - SUICIDAL IDEATION [None]
  - TENSION [None]
